FAERS Safety Report 5735382-1 (Version None)
Quarter: 2008Q2

REPORT INFORMATION
  Report Type: 
  Country: None (occurrence: None)
  Receive Date: 20080508
  Receipt Date: 20080508
  Transmission Date: 20081010
  Serious: Yes (Disabling)
  Sender: FDA-Public Use
  Company Number: None

PATIENT
  Age: 44 Year
  Sex: Female
  Weight: 66.6788 kg

DRUGS (3)
  1. CREST W/ FLUORIDE [Suspect]
     Indication: DENTAL CLEANING
     Dosage: TWO TIMES DAILY DENTAL
     Route: 004
     Dates: start: 20071105, end: 20080506
  2. PRO-HEALTH ORAL RINSE [Concomitant]
  3. PRO-HEALTH TOOTHPASTE [Concomitant]

REACTIONS (1)
  - TOOTH DISCOLOURATION [None]
